FAERS Safety Report 9879426 (Version 2)
Quarter: 2014Q1

REPORT INFORMATION
  Report Type: Spontaneous
  Country: US (occurrence: US)
  Receive Date: 20140206
  Receipt Date: 20140217
  Transmission Date: 20141002
  Serious: Yes (Other)
  Sender: FDA-Public Use
  Company Number: US-PFIZER INC-2014031802

PATIENT
  Age: 50 Year
  Sex: Female
  Weight: 77.1 kg

DRUGS (7)
  1. ADVIL [Suspect]
     Dosage: UNK
  2. IBUPROFEN [Suspect]
     Dosage: UNK
  3. NAPROXEN SODIUM [Suspect]
     Dosage: UNK
  4. MOTRIN [Suspect]
     Dosage: UNK
  5. ALEVE [Suspect]
     Dosage: UNK
  6. PREDNISONE [Concomitant]
     Dosage: UNK
  7. IMURAN [Concomitant]
     Dosage: UNK

REACTIONS (3)
  - Gastric ulcer [Unknown]
  - Nausea [Unknown]
  - Body height decreased [Unknown]
